FAERS Safety Report 5365004-3 (Version None)
Quarter: 2007Q2

REPORT INFORMATION
  Report Type: 
  Country: None (occurrence: None)
  Receive Date: 20070621
  Receipt Date: 20070614
  Transmission Date: 20071010
  Serious: Yes (Death, Life-Threatening)
  Sender: FDA-Public Use
  Company Number: DE-BAXTER-2007BH005496

PATIENT
  Age: 77 Year
  Sex: Female

DRUGS (1)
  1. CIPRO [Suspect]
     Indication: OTITIS MEDIA
     Dosage: DOSE UNIT:UNKNOWN
     Route: 065

REACTIONS (7)
  - CEREBRAL HAEMORRHAGE [None]
  - DEEP VEIN THROMBOSIS [None]
  - FACTOR XIII INHIBITION [None]
  - GASTRIC ULCER HAEMORRHAGE [None]
  - HYPOVOLAEMIC SHOCK [None]
  - JUGULAR VEIN THROMBOSIS [None]
  - SPONTANEOUS HAEMATOMA [None]
